FAERS Safety Report 8991117 (Version 2)
Quarter: 2013Q3

REPORT INFORMATION
  Report Type: Spontaneous
  Country: US (occurrence: US)
  Receive Date: 20121231
  Receipt Date: 20130806
  Transmission Date: 20140515
  Serious: Yes (Other)
  Sender: FDA-Public Use
  Company Number: US-BAYER-2012-135989

PATIENT
  Age: 44 Year
  Sex: Female
  Weight: 102.4 kg

DRUGS (5)
  1. MIRENA [Suspect]
     Indication: CONTRACEPTION
     Dosage: 20 MCG/24HR, CONT
     Route: 015
     Dates: start: 20121029, end: 20121205
  2. MIRENA [Suspect]
     Indication: MENORRHAGIA
  3. NITROFURANTOIN [Concomitant]
     Indication: URINARY TRACT INFECTION
     Dosage: 1 DF, BID
  4. FESOTERODINE [Concomitant]
     Indication: URGE INCONTINENCE
     Dosage: 1 DF, QD
  5. TRANEXAMIC ACID [Concomitant]
     Dosage: UNK DF, UNK

REACTIONS (3)
  - Device expulsion [None]
  - Genital haemorrhage [None]
  - Pain [None]
